FAERS Safety Report 17981273 (Version 1)
Quarter: 2020Q3

REPORT INFORMATION
  Report Type: Spontaneous
  Country: GB (occurrence: GB)
  Receive Date: 20200705
  Receipt Date: 20200705
  Transmission Date: 20201103
  Serious: Yes (Other)
  Sender: FDA-Public Use
  Company Number: NVSC2020GB183147

PATIENT
  Age: 58 Year
  Sex: Male

DRUGS (3)
  1. LAMIVUDINE. [Suspect]
     Active Substance: LAMIVUDINE
     Indication: PRODUCT USED FOR UNKNOWN INDICATION
     Dosage: 1 DF, QD (STRENGTH:300 UNITS NOT PROVIDED)
     Route: 065
  2. NEVIRAPINE. [Suspect]
     Active Substance: NEVIRAPINE
     Indication: PRODUCT USED FOR UNKNOWN INDICATION
     Dosage: 1 DF, QD (STRENGTH: 200 (UNITS NOT PROVIDED)
     Route: 048
  3. RALTEGRAVIR POTASSIUM [Suspect]
     Active Substance: RALTEGRAVIR POTASSIUM
     Indication: PRODUCT USED FOR UNKNOWN INDICATION
     Dosage: 1 DF, QD (STRENGTH: 400 (UNITS NOT PROVIDED)
     Route: 048

REACTIONS (7)
  - Pyrexia [Unknown]
  - Fatigue [Unknown]
  - Hallucination [Unknown]
  - Malaise [Unknown]
  - Asthenia [Unknown]
  - Cough [Unknown]
  - Delirium [Unknown]

NARRATIVE: CASE EVENT DATE: 2020
